FAERS Safety Report 5348351-0 (Version None)
Quarter: 2007Q2

REPORT INFORMATION
  Report Type: 
  Country: None (occurrence: None)
  Receive Date: 20070605
  Receipt Date: 20070529
  Transmission Date: 20071010
  Serious: Yes (Life-Threatening, Other)
  Sender: FDA-Public Use
  Company Number: 2007S1000054

PATIENT
  Age: 8 Day
  Sex: Male
  Weight: 0.89 kg

DRUGS (9)
  1. NITRIC OXIDE [Suspect]
     Indication: LUNG DISORDER
     Dosage: 5 PPM;CONT;INH
     Route: 055
     Dates: start: 20070225, end: 20070318
  2. NITRIC OXIDE [Suspect]
     Indication: PROPHYLAXIS
     Dosage: 5 PPM;CONT;INH
     Route: 055
     Dates: start: 20070225, end: 20070318
  3. AMPICILLIN [Concomitant]
  4. AMIKACIN [Concomitant]
  5. ERYTHROPOIETINE [Concomitant]
  6. THEOPHYLLINE [Concomitant]
  7. RED BLOOD [Concomitant]
  8. IBUPROFEN [Concomitant]
  9. FUROSEMIDE [Concomitant]

REACTIONS (16)
  - ABDOMINAL DISTENSION [None]
  - BLOOD DISORDER [None]
  - BRADYPNOEA [None]
  - CARDIOMEGALY [None]
  - DYSPNOEA [None]
  - ENTEROCOLITIS [None]
  - FEEDING DISORDER NEONATAL [None]
  - HYPERGLYCAEMIA [None]
  - HYPERNATRAEMIA [None]
  - INFANTILE APNOEIC ATTACK [None]
  - INFLAMMATION [None]
  - INTESTINAL OBSTRUCTION [None]
  - METABOLIC ACIDOSIS [None]
  - PATENT DUCTUS ARTERIOSUS [None]
  - PULMONARY OEDEMA [None]
  - WEIGHT DECREASED [None]
